FAERS Safety Report 16337962 (Version 1)
Quarter: 2019Q2

REPORT INFORMATION
  Report Type: Report from Study
  Country: US (occurrence: US)
  Receive Date: 20190521
  Receipt Date: 20190521
  Transmission Date: 20190711
  Serious: Yes (Death, Hospitalization)
  Sender: FDA-Public Use
  Company Number: US-BAYER-2018-133288

PATIENT
  Age: 77 Year
  Sex: Male
  Weight: 68.03 kg

DRUGS (5)
  1. ADEMPAS [Suspect]
     Active Substance: RIOCIGUAT
     Indication: PULMONARY ARTERIAL HYPERTENSION
     Dosage: UNK
     Route: 048
     Dates: start: 20170830
  2. PREDNISONE. [Concomitant]
     Active Substance: PREDNISONE
  3. ADEMPAS [Suspect]
     Active Substance: RIOCIGUAT
     Indication: PULMONARY HYPERTENSION
     Dosage: 1.5 MG, TID
     Route: 048
  4. XARELTO [Concomitant]
     Active Substance: RIVAROXABAN
     Dosage: UNK
  5. LASIX [Concomitant]
     Active Substance: FUROSEMIDE

REACTIONS (6)
  - Pneumonia [None]
  - Chronic right ventricular failure [None]
  - Acute respiratory failure [None]
  - Death [Fatal]
  - Oxygen saturation decreased [Unknown]
  - Off label use [None]

NARRATIVE: CASE EVENT DATE: 201807
